FAERS Safety Report 7565255-3 (Version None)
Quarter: 2011Q2

REPORT INFORMATION
  Report Type: 
  Country: None (occurrence: None)
  Receive Date: 20110622
  Receipt Date: 20110617
  Transmission Date: 20111010
  Serious: Yes (Death, Hospitalization, Other)
  Sender: FDA-Public Use
  Company Number: US-CELGENEUS-163-21880-11062637

PATIENT
  Age: 55 Year
  Sex: Female

DRUGS (12)
  1. REVLIMID [Suspect]
     Dosage: 25 MILLIGRAM
     Route: 048
     Dates: start: 20100401, end: 20100401
  2. PEGFILGRASTIM [Concomitant]
     Route: 065
  3. MORPHINE [Concomitant]
     Route: 065
  4. HYDROCODONE BITARTRATE AND ACETAMINOPHEN [Concomitant]
     Route: 065
  5. REVLIMID [Suspect]
     Indication: MULTIPLE MYELOMA
     Dosage: 25 MILLIGRAM
     Route: 048
     Dates: start: 20090901, end: 20100101
  6. PROCHLORPERAZINE TAB [Concomitant]
     Route: 065
  7. DEXAMETHASONE [Concomitant]
     Route: 065
     Dates: start: 20090901, end: 20100101
  8. GABAPENTIN [Concomitant]
     Route: 065
  9. REVLIMID [Suspect]
     Dosage: 10 MILLIGRAM
     Route: 048
     Dates: start: 20101101, end: 20110101
  10. DEXAMETHASONE [Concomitant]
     Route: 065
     Dates: start: 20100401, end: 20100401
  11. DEXAMETHASONE [Concomitant]
     Route: 065
     Dates: start: 20100701, end: 20100701
  12. OMEPRAZOLE [Concomitant]
     Route: 065

REACTIONS (3)
  - PNEUMONIA [None]
  - PLATELET COUNT DECREASED [None]
  - DEATH [None]
